FAERS Safety Report 11451589 (Version 1)
Quarter: 2015Q3

REPORT INFORMATION
  Report Type: Spontaneous
  Country: US (occurrence: US)
  Receive Date: 20150903
  Receipt Date: 20150903
  Transmission Date: 20151125
  Serious: No
  Sender: FDA-Public Use
  Company Number: US-ROCHE-1054333

PATIENT
  Age: 57 Year
  Sex: Male

DRUGS (1)
  1. PEGASYS [Suspect]
     Active Substance: PEGINTERFERON ALFA-2A
     Indication: PRODUCT USED FOR UNKNOWN INDICATION
     Route: 065

REACTIONS (9)
  - Weight increased [Unknown]
  - Asthenia [Unknown]
  - Food interaction [Unknown]
  - Frustration [Unknown]
  - Irritability [Unknown]
  - Dyspepsia [Unknown]
  - Diarrhoea [Unknown]
  - Blood pressure measurement [Unknown]
  - Dysgeusia [Unknown]
